FAERS Safety Report 4427418-5 (Version None)
Quarter: 2004Q3

REPORT INFORMATION
  Report Type: 
  Country: None (occurrence: None)
  Receive Date: 20040812
  Receipt Date: 20040804
  Transmission Date: 20050211
  Serious: Yes (Death)
  Sender: FDA-Public Use
  Company Number: 000949

PATIENT
  Sex: 0
  Weight: 73 kg

DRUGS (4)
  1. ZEVALIN [Suspect]
     Indication: NON-HODGKIN'S LYMPHOMA
     Dosage: 6.4 MCI, SINGLE, IN-[111] ZEVALIN, INTRAVENOUS
     Route: 042
     Dates: start: 20020730, end: 20020730
  2. ZEVALIN [Suspect]
     Indication: NON-HODGKIN'S LYMPHOMA
     Dosage: 6.4 MCI, SINGLE, IN-[111] ZEVALIN, INTRAVENOUS
     Route: 042
     Dates: start: 20020730, end: 20020730
  3. ZEVALIN [Suspect]
     Indication: NON-HODGKIN'S LYMPHOMA
     Dosage: 6.4 MCI, SINGLE, IN-[111] ZEVALIN, INTRAVENOUS
     Route: 042
     Dates: start: 20020806, end: 20020806
  4. ZEVALIN [Suspect]
     Indication: NON-HODGKIN'S LYMPHOMA
     Dosage: 6.4 MCI, SINGLE, IN-[111] ZEVALIN, INTRAVENOUS
     Route: 042
     Dates: start: 20020806, end: 20020806

REACTIONS (2)
  - NEOPLASM GROWTH ACCELERATED [None]
  - THERAPY NON-RESPONDER [None]
